FAERS Safety Report 17686218 (Version 2)
Quarter: 2020Q2

REPORT INFORMATION
  Report Type: Spontaneous
  Country: US (occurrence: US)
  Receive Date: 20200420
  Receipt Date: 20200629
  Transmission Date: 20200714
  Serious: Yes (Other)
  Sender: FDA-Public Use
  Company Number: US-PURDUE-USA-2020-0151787

PATIENT
  Sex: Female

DRUGS (4)
  1. OXYCONTIN [Suspect]
     Active Substance: OXYCODONE HYDROCHLORIDE
     Indication: HYSTERECTOMY
     Dosage: 40 MG, UNK
     Route: 048
     Dates: end: 2014
  2. COCAINE [Suspect]
     Active Substance: COCAINE
     Indication: PRODUCT USED FOR UNKNOWN INDICATION
     Route: 065
  3. OXYCODONE HYDROCHLORIDE (SIMILAR TO NDA 22-272) [Suspect]
     Active Substance: OXYCODONE HYDROCHLORIDE
     Indication: HYSTERECTOMY
     Dosage: 15 MG, UNK
     Route: 048
     Dates: end: 2014
  4. GABAPENTIN. [Suspect]
     Active Substance: GABAPENTIN
     Indication: HYSTERECTOMY
     Route: 065

REACTIONS (7)
  - Drug dependence [Recovered/Resolved]
  - Leg amputation [Recovered/Resolved]
  - Urticaria [Recovered/Resolved]
  - Knee arthroplasty [Recovered/Resolved]
  - Substance abuse [Unknown]
  - Post procedural infection [Recovered/Resolved]
  - Drug withdrawal syndrome [Unknown]

NARRATIVE: CASE EVENT DATE: 2007
